FAERS Safety Report 24941807 (Version 1)
Quarter: 2025Q1

REPORT INFORMATION
  Report Type: Spontaneous
  Country: US (occurrence: None)
  Receive Date: 20250206
  Receipt Date: 20250206
  Transmission Date: 20250408
  Serious: Yes (Death, Life-Threatening, Hospitalization)
  Sender: FDA-CTU
  Company Number: None

PATIENT
  Age: 73 Year
  Sex: Male
  Weight: 56.25 kg

DRUGS (1)
  1. CAPECITABINE [Suspect]
     Active Substance: CAPECITABINE
     Indication: Chemotherapy
     Dosage: OTHER QUANTITY : 4 TABLET(S);?FREQUENCY : TWICE A DAY;?
     Route: 048
     Dates: start: 20230423, end: 20230501

REACTIONS (10)
  - Overdose [None]
  - Endotracheal intubation [None]
  - Mucosal inflammation [None]
  - Neutropenia [None]
  - Pancytopenia [None]
  - Pneumonia staphylococcal [None]
  - Enterococcal infection [None]
  - Malnutrition [None]
  - Diarrhoea [None]
  - Gastrointestinal ulcer [None]

NARRATIVE: CASE EVENT DATE: 20230424
